FAERS Safety Report 5055521-8 (Version None)
Quarter: 2006Q3

REPORT INFORMATION
  Report Type: 
  Country: None (occurrence: None)
  Receive Date: 20060717
  Receipt Date: 20060717
  Transmission Date: 20061208
  Serious: Yes (Hospitalization)
  Sender: FDA-Public Use
  Company Number: None

PATIENT
  Sex: Female

DRUGS (5)
  1. OXALIPLATIN [Suspect]
     Indication: LUNG NEOPLASM MALIGNANT
     Dosage: 85 MG/M2 DAY 1-15 / CYCLE
     Dates: start: 20060310, end: 20060607
  2. DOCETAXEL [Suspect]
     Indication: LUNG NEOPLASM MALIGNANT
     Dosage: 30 MG/M2 DAY 1 + 8/CYCLE
     Dates: start: 20060310, end: 20060607
  3. COMPAZINE [Concomitant]
  4. PREDNISONE TAB [Concomitant]
  5. ATIVAN [Concomitant]

REACTIONS (1)
  - HAEMOPTYSIS [None]
